FAERS Safety Report 21522851 (Version 4)
Quarter: 2022Q4

REPORT INFORMATION
  Report Type: Spontaneous
  Country: US (occurrence: US)
  Receive Date: 20221029
  Receipt Date: 20221118
  Transmission Date: 20230112
  Serious: Yes (Other)
  Sender: FDA-Public Use
  Company Number: US-UNITED THERAPEUTICS-UNT-2022-025240

PATIENT
  Sex: Female
  Weight: 75.283 kg

DRUGS (6)
  1. REMODULIN [Suspect]
     Active Substance: TREPROSTINIL
     Indication: Pulmonary arterial hypertension
     Dosage: UNK, CONTINUING
     Route: 041
     Dates: start: 20191107
  2. REMODULIN [Suspect]
     Active Substance: TREPROSTINIL
     Dosage: 0.08503 ?G/KG, CONTINUING
     Route: 041
  3. REMODULIN [Suspect]
     Active Substance: TREPROSTINIL
     Dosage: UNK, CONTINUING
     Route: 041
  4. TADALAFIL [Concomitant]
     Active Substance: TADALAFIL
     Indication: Product used for unknown indication
     Route: 065
  5. LETAIRIS [Concomitant]
     Active Substance: AMBRISENTAN
     Indication: Product used for unknown indication
     Route: 065
  6. ELIQUIS [Concomitant]
     Active Substance: APIXABAN
     Indication: Product used for unknown indication
     Route: 065

REACTIONS (12)
  - Vascular device occlusion [Unknown]
  - Mental impairment [Unknown]
  - Embolism [Unknown]
  - Overdose [Recovered/Resolved]
  - Hyperhidrosis [Unknown]
  - Device infusion issue [Recovered/Resolved]
  - Catheter site extravasation [Unknown]
  - Catheter site haemorrhage [Unknown]
  - Seasonal allergy [Unknown]
  - Insomnia [Unknown]
  - Anxiety [Unknown]
  - Device connection issue [Recovered/Resolved]

NARRATIVE: CASE EVENT DATE: 20220101
